FAERS Safety Report 10803137 (Version 2)
Quarter: 2015Q1

REPORT INFORMATION
  Report Type: Report from Study
  Country: KR (occurrence: KR)
  Receive Date: 20150217
  Receipt Date: 20150226
  Transmission Date: 20150721
  Serious: Yes (Other)
  Sender: FDA-Public Use
  Company Number: PHHY2015KR016287

PATIENT
  Age: 47 Year
  Sex: Male

DRUGS (8)
  1. TASIGNA [Suspect]
     Active Substance: NILOTINIB
     Indication: CHRONIC MYELOID LEUKAEMIA
     Dosage: 600 MG, BID
     Route: 048
     Dates: start: 20141027
  2. SYNTHROID [Concomitant]
     Active Substance: LEVOTHYROXINE SODIUM
     Indication: HYPOTHYROIDISM
     Dosage: 0.1 MG, QD
     Route: 065
  3. URSA [Concomitant]
     Indication: HEPATITIS ALCOHOLIC
     Dosage: 100 MG, BID
     Route: 065
  4. XALATAN [Concomitant]
     Active Substance: LATANOPROST
     Indication: OCULAR HYPERTENSION
     Dosage: 1 DF, QD
     Route: 065
  5. GODEX [Concomitant]
     Indication: HEPATITIS ALCOHOLIC
     Dosage: 1 DF, QD
     Route: 065
  6. REMIST [Concomitant]
     Indication: CHRONIC GASTRITIS
     Dosage: 1 DF, QD
     Route: 065
  7. LIVERA [Concomitant]
     Indication: CHRONIC GASTRITIS
     Dosage: 1 DF, QD
     Route: 065
  8. FAMOTIDINE. [Concomitant]
     Active Substance: FAMOTIDINE
     Indication: CHRONIC GASTRITIS
     Dosage: 1 DF, QD
     Route: 065

REACTIONS (4)
  - Noninfective gingivitis [Not Recovered/Not Resolved]
  - Urticaria [Not Recovered/Not Resolved]
  - Alopecia [Not Recovered/Not Resolved]
  - Anal abscess [Recovered/Resolved]

NARRATIVE: CASE EVENT DATE: 201502
